FAERS Safety Report 9110180 (Version 5)
Quarter: 2013Q4

REPORT INFORMATION
  Report Type: Spontaneous
  Country: JP (occurrence: JP)
  Receive Date: 20130222
  Receipt Date: 20131126
  Transmission Date: 20140711
  Serious: Yes (Hospitalization, Other)
  Sender: FDA-Public Use
  Company Number: JP-ROCHE-1193035

PATIENT
  Age: 26 Year
  Sex: Female
  Weight: 66 kg

DRUGS (19)
  1. XOLAIR [Suspect]
     Indication: ASTHMA
     Route: 065
     Dates: start: 20100323
  2. XOLAIR [Suspect]
     Route: 058
     Dates: start: 20121221
  3. XOLAIR [Suspect]
     Route: 058
     Dates: start: 20130215, end: 20130215
  4. XOLAIR [Suspect]
     Route: 065
     Dates: start: 20130221
  5. XOLAIR [Suspect]
     Route: 065
     Dates: start: 20100907
  6. XOLAIR [Suspect]
     Route: 065
     Dates: start: 20101012
  7. BAKTAR [Concomitant]
     Route: 065
     Dates: end: 20130215
  8. ONEALFA [Concomitant]
  9. LANSOPRAZOLE [Concomitant]
  10. KIPRES [Concomitant]
  11. CRESTOR [Concomitant]
  12. GASMOTIN [Concomitant]
  13. RIMATIL [Concomitant]
  14. PAXIL [Concomitant]
  15. REBAMIPIDE [Concomitant]
  16. ALVESCO [Concomitant]
  17. PULMICORT [Concomitant]
  18. SPIRIVA [Concomitant]
  19. SEREVENT [Concomitant]

REACTIONS (14)
  - Anaphylactic reaction [Recovered/Resolved]
  - Convulsion [Recovering/Resolving]
  - Flushing [Recovered/Resolved]
  - Upper airway obstruction [Recovered/Resolved]
  - Erythema [Unknown]
  - Wheezing [Unknown]
  - Dyspnoea [Unknown]
  - Blood pressure decreased [Unknown]
  - Heart rate increased [Unknown]
  - Oedema [Unknown]
  - Erythema [Unknown]
  - Tracheal oedema [Unknown]
  - Skin swelling [Unknown]
  - Human anti-human antibody test [Unknown]
